FAERS Safety Report 5899112-5 (Version None)
Quarter: 2008Q3

REPORT INFORMATION
  Report Type: 
  Country: None (occurrence: None)
  Receive Date: 20080917
  Receipt Date: 20080522
  Transmission Date: 20090109
  Serious: Yes (Life-Threatening)
  Sender: FDA-Public Use
  Company Number: PHEH2008US04814

PATIENT
  Age: 73 Year
  Sex: Female
  Weight: 59 kg

DRUGS (3)
  1. FEMARA [Suspect]
     Dosage: 2.5 MG
     Dates: end: 20080501
  2. FOSAMAX [Concomitant]
  3. ZOCOR [Concomitant]

REACTIONS (3)
  - CONTRACEPTION [None]
  - DEPRESSION [None]
  - SUICIDAL IDEATION [None]
